FAERS Safety Report 4444422-1 (Version None)
Quarter: 2004Q3

REPORT INFORMATION
  Report Type: 
  Country: None (occurrence: None)
  Receive Date: 20040902
  Receipt Date: 20040825
  Transmission Date: 20050211
  Serious: Yes (Other)
  Sender: FDA-Public Use
  Company Number: 208661

PATIENT
  Sex: Female

DRUGS (5)
  1. XOLAIR [Suspect]
     Indication: ASTHMA
     Dosage: 150 MG, 1/MONTH, SUBCUTANEOUS
     Route: 058
  2. ADAVIR (SALMETEROL XINAFOATE, FLUTICASONE PROPIONAE) [Concomitant]
  3. ACCOLATE [Concomitant]
  4. FLONASE [Concomitant]
  5. ZYRTEC [Concomitant]

REACTIONS (3)
  - ASTHMA [None]
  - CYANOSIS [None]
  - PARAESTHESIA [None]
